FAERS Safety Report 5972982-8 (Version None)
Quarter: 2008Q4

REPORT INFORMATION
  Report Type: 
  Country: None (occurrence: None)
  Receive Date: 20081201
  Receipt Date: 20081124
  Transmission Date: 20090506
  Serious: Yes (Hospitalization)
  Sender: FDA-Public Use
  Company Number: PHHY2008FI29513

PATIENT
  Sex: Male

DRUGS (2)
  1. TEGRETOL [Suspect]
     Dosage: 800 MG/ DAY
     Dates: start: 20080709, end: 20081014
  2. ASPIRIN AND DIPYRIDAMOLE [Concomitant]
     Dosage: 1X2
     Dates: start: 20080930

REACTIONS (2)
  - GASTROENTERITIS [None]
  - NEUTROPENIA [None]
